FAERS Safety Report 17065654 (Version 1)
Quarter: 2019Q4

REPORT INFORMATION
  Report Type: Spontaneous
  Country: US (occurrence: US)
  Receive Date: 20191122
  Receipt Date: 20191122
  Transmission Date: 20200122
  Serious: Yes (Hospitalization)
  Sender: FDA-Public Use
  Company Number: None

PATIENT
  Age: 0 Day
  Sex: Female
  Weight: 44.55 kg

DRUGS (16)
  1. PANTOPRAZOLE SODIUM. [Concomitant]
     Active Substance: PANTOPRAZOLE SODIUM
  2. DIGOXIN. [Concomitant]
     Active Substance: DIGOXIN
  3. PLAQUENIL [Concomitant]
     Active Substance: HYDROXYCHLOROQUINE SULFATE
  4. MAGNESIUM OXIDE 400 [Concomitant]
  5. POMALYST [Concomitant]
     Active Substance: POMALIDOMIDE
  6. MORPHINE SULFATE ER [Concomitant]
     Active Substance: MORPHINE SULFATE
  7. LYRICA [Concomitant]
     Active Substance: PREGABALIN
  8. LOMOTIL [Concomitant]
     Active Substance: ATROPINE SULFATE\DIPHENOXYLATE HYDROCHLORIDE
  9. FUROSEMIDE. [Concomitant]
     Active Substance: FUROSEMIDE
  10. VANCOMYCIN HCL [Concomitant]
     Active Substance: VANCOMYCIN HYDROCHLORIDE
  11. XPOVIO [Suspect]
     Active Substance: SELINEXOR
     Indication: PLASMA CELL MYELOMA
     Dosage: ?          OTHER FREQUENCY:TWICE PER WEEK;?
     Route: 048
     Dates: start: 20191018, end: 20191122
  12. PREDNISONE. [Concomitant]
     Active Substance: PREDNISONE
  13. DILTIAZEM CD [Concomitant]
     Active Substance: DILTIAZEM
  14. CELEBREX [Concomitant]
     Active Substance: CELECOXIB
  15. METFORMIN HCL [Concomitant]
     Active Substance: METFORMIN HYDROCHLORIDE
  16. DICYCLOMINE HCL [Concomitant]
     Active Substance: DICYCLOMINE HYDROCHLORIDE

REACTIONS (2)
  - Localised infection [None]
  - Foot amputation [None]

NARRATIVE: CASE EVENT DATE: 20191122
